FAERS Safety Report 9951837 (Version 3)
Quarter: 2014Q2

REPORT INFORMATION
  Report Type: Spontaneous
  Country: US (occurrence: US)
  Receive Date: 20140304
  Receipt Date: 20140529
  Transmission Date: 20141212
  Serious: Yes (Hospitalization)
  Sender: FDA-Public Use
  Company Number: US-BAYER-2014-031348

PATIENT
  Age: 33 Year
  Sex: Female
  Weight: 109.75 kg

DRUGS (3)
  1. MIRENA [Suspect]
     Indication: CONTRACEPTION
     Dosage: 20 MCG/24HR, CONT
     Route: 015
     Dates: start: 20081102, end: 20100623
  2. MIRENA [Suspect]
     Indication: MENORRHAGIA
  3. IBUPROFEN [Concomitant]

REACTIONS (9)
  - Uterine perforation [None]
  - Genital haemorrhage [None]
  - Ovarian cyst ruptured [None]
  - Pain [None]
  - Depression [None]
  - Infertility female [None]
  - Device difficult to use [None]
  - Injury [None]
  - Emotional distress [None]
